FAERS Safety Report 6546385-1 (Version None)
Quarter: 2010Q1

REPORT INFORMATION
  Report Type: 
  Country: None (occurrence: None)
  Receive Date: 20100119
  Receipt Date: 20100104
  Transmission Date: 20100710
  Serious: Yes (Death, Hospitalization)
  Sender: FDA-Public Use
  Company Number: 2009AC000029

PATIENT
  Age: 49 Year
  Sex: Male

DRUGS (27)
  1. DIGOXIN [Suspect]
     Dosage: 0.125 MG; PO
     Route: 048
     Dates: start: 20060301
  2. LOPRESSOR [Concomitant]
  3. AMIODARONE [Concomitant]
  4. LASIX [Concomitant]
  5. LISINOPRIL [Concomitant]
  6. DIOVAN [Concomitant]
  7. SPIRONOLACTONE [Concomitant]
  8. COREG [Concomitant]
  9. POTASSIUM [Concomitant]
  10. HYDROCODONE [Concomitant]
  11. COUMADIN [Concomitant]
  12. POTASSIUM CHLORIDE [Concomitant]
  13. NASACORT [Concomitant]
  14. HYDROCODONE [Concomitant]
  15. SINGULAIR [Concomitant]
  16. SYNTHROID [Concomitant]
  17. TEMAZEPAM [Concomitant]
  18. ZOCOR [Concomitant]
  19. ZYRTEC [Concomitant]
  20. LASIX [Concomitant]
  21. LISINOPRIL [Concomitant]
  22. ADVAIR [Concomitant]
  23. GLIMEPIRIDE [Concomitant]
  24. FUROSEMIDE [Concomitant]
  25. DIOVAN [Concomitant]
  26. SPIRONOLACTONE [Concomitant]
  27. CYCLOBENZAPRINE [Concomitant]

REACTIONS (42)
  - ARRHYTHMIA [None]
  - ATRIAL FIBRILLATION [None]
  - BUNDLE BRANCH BLOCK LEFT [None]
  - CARDIAC ARREST [None]
  - CARDIAC DISORDER [None]
  - CARDIOMEGALY [None]
  - CHRONIC OBSTRUCTIVE PULMONARY DISEASE [None]
  - COMA [None]
  - CONFUSIONAL STATE [None]
  - CYANOSIS [None]
  - DIABETES MELLITUS [None]
  - DISORIENTATION [None]
  - DIZZINESS [None]
  - DYSPNOEA [None]
  - DYSURIA [None]
  - FATIGUE [None]
  - HYPERGLYCAEMIA [None]
  - HYPERTENSION [None]
  - HYPOTENSION [None]
  - HYPOVOLAEMIA [None]
  - HYPOXIA [None]
  - ISCHAEMIC CARDIOMYOPATHY [None]
  - LETHARGY [None]
  - LYMPHADENOPATHY [None]
  - LYMPHOMA [None]
  - METABOLIC SYNDROME [None]
  - MYOCARDIAL ISCHAEMIA [None]
  - NAUSEA [None]
  - NECK MASS [None]
  - OEDEMA PERIPHERAL [None]
  - RASH [None]
  - RENAL FAILURE [None]
  - SOMNOLENCE [None]
  - TACHYCARDIA [None]
  - UNRESPONSIVE TO STIMULI [None]
  - URINARY TRACT INFECTION STAPHYLOCOCCAL [None]
  - VENTRICULAR FIBRILLATION [None]
  - VENTRICULAR TACHYCARDIA [None]
  - VIRAL INFECTION [None]
  - VOMITING [None]
  - WEIGHT INCREASED [None]
  - WOUND [None]
